FAERS Safety Report 16679964 (Version 2)
Quarter: 2019Q3

REPORT INFORMATION
  Report Type: Spontaneous
  Country: GR (occurrence: GR)
  Receive Date: 20190807
  Receipt Date: 20190912
  Transmission Date: 20191004
  Serious: Yes (Other)
  Sender: FDA-Public Use
  Company Number: GR-JNJFOC-20190802899

PATIENT
  Sex: Female
  Weight: 62 kg

DRUGS (10)
  1. PREZOLON [Suspect]
     Active Substance: PREDNISOLONE
     Indication: B-CELL LYMPHOMA
     Dosage: DAY 1 CYCLES 5 FOR 6 CYCLES
     Route: 042
     Dates: start: 20190506, end: 20190527
  2. VEPESID [Suspect]
     Active Substance: ETOPOSIDE
     Indication: B-CELL LYMPHOMA
     Route: 042
     Dates: start: 20190506, end: 20190527
  3. DOXORUBICIN HYDROCHLORIDE. [Suspect]
     Active Substance: DOXORUBICIN HYDROCHLORIDE
     Indication: B-CELL LYMPHOMA
     Dosage: DAY 1 CYCLES 1 FOR 6 CYCLES
     Route: 065
     Dates: end: 20190329
  4. RITUXIMAB. [Suspect]
     Active Substance: RITUXIMAB
     Dosage: 2 SALVAGE REGIMENS 2 CYCLES
     Route: 042
     Dates: start: 20190506, end: 20190527
  5. PLATINOL [Suspect]
     Active Substance: CISPLATIN
     Indication: B-CELL LYMPHOMA
     Route: 042
     Dates: start: 20190506, end: 20190527
  6. RITUXIMAB. [Suspect]
     Active Substance: RITUXIMAB
     Route: 042
     Dates: start: 20181130
  7. CYCLOPHOSPHAMIDE. [Suspect]
     Active Substance: CYCLOPHOSPHAMIDE
     Indication: B-CELL LYMPHOMA
     Dosage: DAY 1 CYCLES 1 FOR 6 CYCLES
     Route: 042
     Dates: end: 20190329
  8. RITUXIMAB. [Suspect]
     Active Substance: RITUXIMAB
     Indication: B-CELL LYMPHOMA
     Dosage: DAY 1 CYCLE 1 FOR 6 CYCLES
     Route: 042
     Dates: end: 20190329
  9. PREZOLON [Suspect]
     Active Substance: PREDNISOLONE
     Dosage: DAY 1 CYCLES 5 FOR 6 CYCLES
     Route: 042
     Dates: end: 20190329
  10. ARA-C [Suspect]
     Active Substance: CYTARABINE
     Indication: B-CELL LYMPHOMA
     Route: 042
     Dates: start: 20190506, end: 20190527

REACTIONS (5)
  - Off label use [Unknown]
  - Product use in unapproved indication [Unknown]
  - Pain [Unknown]
  - Pyrexia [Unknown]
  - B-cell lymphoma refractory [Unknown]
